FAERS Safety Report 5064028-3 (Version None)
Quarter: 2006Q3

REPORT INFORMATION
  Report Type: 
  Country: None (occurrence: None)
  Receive Date: 20060706
  Receipt Date: 20060503
  Transmission Date: 20061208
  Serious: No
  Sender: FDA-Public Use
  Company Number: 200612804BWH

PATIENT
  Sex: Male

DRUGS (5)
  1. LEVITRA [Suspect]
     Indication: DRUG USE FOR UNKNOWN INDICATION
     Dosage: ORAL
     Route: 048
  2. ZANTAC [Concomitant]
  3. PLENDIL [Concomitant]
  4. ZESTRIL [Concomitant]
  5. GLYBURIDE [Concomitant]

REACTIONS (6)
  - ERUCTATION [None]
  - HICCUPS [None]
  - NAUSEA [None]
  - RHINORRHOEA [None]
  - SINUS DISORDER [None]
  - STOMACH DISCOMFORT [None]
